FAERS Safety Report 5389858-X (Version None)
Quarter: 2007Q3

REPORT INFORMATION
  Report Type: 
  Country: None (occurrence: None)
  Receive Date: 20070716
  Receipt Date: 20070628
  Transmission Date: 20080115
  Serious: Yes (Other)
  Sender: FDA-Public Use
  Company Number: DSA_30183_2007

PATIENT
  Age: 49 Year
  Sex: Male

DRUGS (3)
  1. TAVOR /00273201/ (TAVOR) 0.5 MG [Suspect]
     Dosage: 0.5 MG QD ORAL
     Route: 048
  2. TREVILOR (TREVILOR RETARD) (NOT SPECIFIED) [Suspect]
     Indication: DEPRESSION
     Dosage: 375 MG TOTAL ORAL
     Route: 048
  3. MIRTAZAPINE [Suspect]
     Indication: DEPRESSION
     Dosage: 45 MG TOTAL ORAL
     Route: 048

REACTIONS (1)
  - BLOOD CREATINE PHOSPHOKINASE INCREASED [None]
